FAERS Safety Report 9133204 (Version 1)
Quarter: 2013Q1

REPORT INFORMATION
  Report Type: Spontaneous
  Country: US (occurrence: US)
  Receive Date: 20130129
  Receipt Date: 20130129
  Transmission Date: 20140127
  Serious: No
  Sender: FDA-Public Use
  Company Number: US-ABBOTT-12P-163-0933562-00

PATIENT
  Sex: Male

DRUGS (9)
  1. HUMIRA 40 MG/0.8 ML PEN [Suspect]
     Indication: RHEUMATOID ARTHRITIS
     Dates: start: 201106
  2. FOSAMAX [Concomitant]
     Indication: BONE DISORDER
  3. FOLIC ACID [Concomitant]
     Indication: VITAMIN SUPPLEMENTATION
  4. METHOTREXATE [Concomitant]
     Indication: RHEUMATOID ARTHRITIS
  5. TRAMADOL [Concomitant]
     Indication: RHEUMATOID ARTHRITIS
  6. OMEPRAZOLE [Concomitant]
     Indication: GASTRIC DISORDER
  7. PRENATAL VITAMINS [Concomitant]
     Indication: VITAMIN SUPPLEMENTATION
  8. CALCIUM [Concomitant]
     Indication: MINERAL SUPPLEMENTATION
  9. TYLENOL EXTRA STRENGTH [Concomitant]
     Indication: RHEUMATOID ARTHRITIS

REACTIONS (2)
  - Eye disorder [Not Recovered/Not Resolved]
  - Basal cell carcinoma [Unknown]
